FAERS Safety Report 5154145-1 (Version None)
Quarter: 2006Q4

REPORT INFORMATION
  Report Type: 
  Country: None (occurrence: None)
  Receive Date: 20061120
  Receipt Date: 20061026
  Transmission Date: 20070319
  Serious: Yes (Hospitalization)
  Sender: FDA-Public Use
  Company Number: GB-BRISTOL-MYERS SQUIBB COMPANY-13560883

PATIENT
  Age: 61 Year
  Sex: Male

DRUGS (10)
  1. CARDIOLITE [Suspect]
     Indication: SCAN MYOCARDIAL PERFUSION
     Dates: start: 20060915
  2. ACETAMINOPHEN [Concomitant]
     Route: 048
  3. NIFEDIPINE [Concomitant]
     Route: 048
  4. SIMVASTATIN [Concomitant]
     Route: 048
  5. GLYCERYL TRINITRATE [Concomitant]
     Route: 060
  6. VALSARTAN [Concomitant]
     Route: 048
  7. FINASTERIDE [Concomitant]
     Route: 048
  8. ASPIRIN [Concomitant]
     Route: 048
  9. CLOPIDOGREL BISULFATE [Concomitant]
     Route: 048
  10. BUPRENORPHINE HCL [Concomitant]
     Route: 060

REACTIONS (12)
  - ABDOMINAL DISCOMFORT [None]
  - ANXIETY [None]
  - CHEST PAIN [None]
  - CIRCULATORY COLLAPSE [None]
  - DIZZINESS [None]
  - FATIGUE [None]
  - HEADACHE [None]
  - LETHARGY [None]
  - NAUSEA [None]
  - PHARYNGOLARYNGEAL PAIN [None]
  - RENAL PAIN [None]
  - TREMOR [None]
